FAERS Safety Report 19979265 (Version 5)
Quarter: 2025Q2

REPORT INFORMATION
  Report Type: Report from Study
  Country: CA (occurrence: CA)
  Receive Date: 20211021
  Receipt Date: 20250528
  Transmission Date: 20250716
  Serious: Yes (Hospitalization, Other)
  Sender: ROCHE
  Company Number: CA-002147023-PHHY2014CA047015

PATIENT
  Age: 17 Year
  Sex: Female
  Weight: 64.0 kg

DRUGS (5)
  1. XOLAIR [Suspect]
     Active Substance: OMALIZUMAB
     Indication: Asthma
     Dosage: 225 MG, EVERY 2 WEEKS
     Route: 058
     Dates: start: 20140410, end: 20141102
  2. ADVAIR HFA [Concomitant]
     Active Substance: FLUTICASONE PROPIONATE\SALMETEROL XINAFOATE
     Route: 065
  3. FLOVENT [Concomitant]
     Active Substance: FLUTICASONE PROPIONATE
     Route: 065
  4. ALBUTEROL [Concomitant]
     Active Substance: ALBUTEROL
     Route: 065
  5. ATROVENT [Concomitant]
     Active Substance: IPRATROPIUM BROMIDE
     Route: 065

REACTIONS (17)
  - Pneumonia [Unknown]
  - Influenza [Unknown]
  - Pulmonary oedema [Unknown]
  - Infection [Unknown]
  - Immune system disorder [Unknown]
  - Lower respiratory tract infection [Unknown]
  - Decreased appetite [Unknown]
  - Wheezing [Unknown]
  - Migraine [Unknown]
  - Pulmonary function test abnormal [Unknown]
  - Illness [Unknown]
  - Nausea [Recovered/Resolved]
  - Cough [Unknown]
  - Malaise [Unknown]
  - Middle insomnia [Unknown]
  - Asthma [Unknown]
  - Maternal exposure before pregnancy [Unknown]

NARRATIVE: CASE EVENT DATE: 20140411
